FAERS Safety Report 16639290 (Version 2)
Quarter: 2020Q4

REPORT INFORMATION
  Report Type: Report from Study
  Country: None (occurrence: US)
  Receive Date: 20190726
  Receipt Date: 20201016
  Transmission Date: 20210113
  Serious: Yes (Other)
  Sender: FDA-Public Use
  Company Number: US-BIOVITRUM-2019US2078

PATIENT
  Age: 45 Year
  Sex: Female

DRUGS (1)
  1. KINERET [Suspect]
     Active Substance: ANAKINRA
     Indication: PERICARDITIS
     Route: 058
     Dates: start: 20190215

REACTIONS (7)
  - Illness [Unknown]
  - Inflammation [Unknown]
  - Off label use [Unknown]
  - Feeling abnormal [Unknown]
  - Pericarditis [Unknown]
  - Aphonia [Unknown]
  - Drug ineffective [Unknown]

NARRATIVE: CASE EVENT DATE: 20190215
